FAERS Safety Report 9385003 (Version 1)
Quarter: 2013Q3

REPORT INFORMATION
  Report Type: Spontaneous
  Country: US (occurrence: US)
  Receive Date: 20130705
  Receipt Date: 20130705
  Transmission Date: 20140515
  Serious: No
  Sender: FDA-Public Use
  Company Number: US-GLAXOSMITHKLINE-A1023089A

PATIENT
  Age: 40 Year
  Sex: Female
  Weight: 90.5 kg

DRUGS (3)
  1. BENLYSTA [Suspect]
     Indication: SYSTEMIC LUPUS ERYTHEMATOSUS
     Route: 042
     Dates: start: 20110612
  2. BENADRYL [Concomitant]
  3. TYLENOL [Concomitant]

REACTIONS (1)
  - Infusion site pain [Unknown]
